FAERS Safety Report 5747296-1 (Version None)
Quarter: 2008Q2

REPORT INFORMATION
  Report Type: 
  Country: None (occurrence: None)
  Receive Date: 20080523
  Receipt Date: 20080514
  Transmission Date: 20081010
  Serious: Yes (Hospitalization)
  Sender: FDA-Public Use
  Company Number: ES-BRISTOL-MYERS SQUIBB COMPANY-14198733

PATIENT
  Age: 66 Year
  Sex: Female

DRUGS (8)
  1. ENDOXAN [Suspect]
     Route: 042
     Dates: start: 20070917, end: 20070917
  2. ADRIAMYCIN PFS [Suspect]
     Route: 042
     Dates: start: 20070917, end: 20070917
  3. FLUOROURACIL [Suspect]
     Route: 042
     Dates: start: 20070917, end: 20070917
  4. LEVOTHYROXINE SODIUM [Concomitant]
     Route: 048
  5. TRANKIMAZIN [Concomitant]
     Dosage: TRANKIMAZIN 1 MG.
     Route: 048
  6. LORMETAZEPAM [Concomitant]
     Route: 048
  7. MIRTAZAPINE [Concomitant]
     Route: 048
  8. PAROXETINE HCL [Concomitant]
     Dosage: DOSAGE FORM IS MENTIONED AS 20 MG.
     Route: 048

REACTIONS (2)
  - DEEP VEIN THROMBOSIS [None]
  - PULMONARY EMBOLISM [None]
